FAERS Safety Report 17548490 (Version 5)
Quarter: 2020Q2

REPORT INFORMATION
  Report Type: Report from Study
  Country: None (occurrence: US)
  Receive Date: 20200317
  Receipt Date: 20200516
  Transmission Date: 20200713
  Serious: Yes (Hospitalization)
  Sender: FDA-Public Use
  Company Number: US-ABBVIE-20K-163-3322832-00

PATIENT
  Sex: Male
  Weight: 70.37 kg

DRUGS (3)
  1. HUMIRA [Suspect]
     Active Substance: ADALIMUMAB
     Indication: HIDRADENITIS
     Route: 058
     Dates: start: 201909
  2. HUMIRA [Suspect]
     Active Substance: ADALIMUMAB
     Route: 058
  3. CHANTIX [Suspect]
     Active Substance: VARENICLINE TARTRATE
     Indication: PRODUCT USED FOR UNKNOWN INDICATION
     Route: 065

REACTIONS (8)
  - Malaise [Recovered/Resolved]
  - Nausea [Recovered/Resolved]
  - Skin irritation [Not Recovered/Not Resolved]
  - Hidradenitis [Not Recovered/Not Resolved]
  - Cyst [Not Recovered/Not Resolved]
  - Infection [Not Recovered/Not Resolved]
  - Abnormal dreams [Recovered/Resolved]
  - Scar [Not Recovered/Not Resolved]
